FAERS Safety Report 8303214 (Version 4)
Quarter: 2014Q1

REPORT INFORMATION
  Report Type: Spontaneous
  Country: US (occurrence: US)
  Receive Date: 20111220
  Receipt Date: 20140108
  Transmission Date: 20141002
  Serious: Yes (Hospitalization, Other)
  Sender: FDA-Public Use
  Company Number: US-ROCHE-803155

PATIENT
  Age: 37 Year
  Sex: Male
  Weight: 95.34 kg

DRUGS (1)
  1. ACCUTANE [Suspect]
     Indication: ACNE
     Route: 065
     Dates: start: 199111, end: 199202

REACTIONS (9)
  - Crohn^s disease [Unknown]
  - Colitis ulcerative [Unknown]
  - Inflammatory bowel disease [Unknown]
  - Anal fistula [Unknown]
  - Intestinal obstruction [Unknown]
  - Depression [Unknown]
  - Gastrointestinal haemorrhage [Unknown]
  - Irritable bowel syndrome [Unknown]
  - Anaemia [Unknown]
